FAERS Safety Report 21228241 (Version 2)
Quarter: 2022Q4

REPORT INFORMATION
  Report Type: Spontaneous
  Country: CA (occurrence: CA)
  Receive Date: 20220818
  Receipt Date: 20221005
  Transmission Date: 20230113
  Serious: No
  Sender: FDA-Public Use
  Company Number: CA-VERTEX PHARMACEUTICALS-2022-012079

PATIENT
  Age: 4 Year
  Sex: Male

DRUGS (1)
  1. ORKAMBI [Suspect]
     Active Substance: IVACAFTOR\LUMACAFTOR
     Indication: Cystic fibrosis
     Dosage: 2 DOSAGE FORM (150 MG LUMACAFTOR/188 MG IVACAFTOR), BID
     Route: 048

REACTIONS (1)
  - Tonsillar disorder [Unknown]
